FAERS Safety Report 5829411-4 (Version None)
Quarter: 2008Q3

REPORT INFORMATION
  Report Type: 
  Country: None (occurrence: None)
  Receive Date: 20080729
  Receipt Date: 20080716
  Transmission Date: 20090109
  Serious: Yes (Life-Threatening, Other)
  Sender: FDA-Public Use
  Company Number: 2008AL008450

PATIENT
  Age: 76 Year
  Sex: Female
  Weight: 70.3075 kg

DRUGS (2)
  1. DIGOXIN [Suspect]
     Dosage: 0.125MG
     Dates: start: 20000220, end: 20080512
  2. DIGIBIND [Suspect]
     Indication: OVERDOSE
     Dates: start: 20080510, end: 20080510

REACTIONS (6)
  - COMA [None]
  - HEART INJURY [None]
  - INJURY [None]
  - LUNG INJURY [None]
  - OVERDOSE [None]
  - RENAL FAILURE [None]
